FAERS Safety Report 8558681-7 (Version None)
Quarter: 2012Q3

REPORT INFORMATION
  Report Type: 
  Country: None (occurrence: None)
  Receive Date: 20120801
  Receipt Date: 20120725
  Transmission Date: 20120928
  Serious: Yes (Other)
  Sender: FDA-Public Use
  Company Number: US-JNJFOC-20120705328

PATIENT
  Sex: Male
  Weight: 99.79 kg

DRUGS (12)
  1. MIRALAX [Concomitant]
     Indication: CONSTIPATION
     Route: 048
  2. OXYCODONE HCL [Concomitant]
     Indication: BACK PAIN
     Dosage: 3-5 DAILY
     Route: 065
     Dates: start: 20090109
  3. ACIPHEX [Concomitant]
     Indication: GASTROOESOPHAGEAL REFLUX DISEASE
     Route: 065
  4. CISAPRIDE [Suspect]
     Indication: GASTROINTESTINAL MOTILITY DISORDER
     Route: 048
  5. CHELATED MAGNESIUM [Concomitant]
     Indication: MIGRAINE
     Route: 065
     Dates: start: 20030520
  6. NASONEX [Concomitant]
     Indication: SNORING
     Dosage: 2 SPRAY/NOSTRIL
     Route: 045
  7. LYRICA [Concomitant]
     Indication: ARTHRITIS
     Route: 065
     Dates: start: 20090513
  8. CELEBREX [Concomitant]
     Indication: ARTHRITIS
     Dosage: UNSPECIFIED DATE IN MAR- RESTARTED (ILLIGEBLE DOCUMENT)
     Route: 065
     Dates: start: 20060301
  9. FLOMAX [Concomitant]
     Indication: PRODUCT USED FOR UNKNOWN INDICATION
     Route: 065
     Dates: start: 20060810
  10. CISAPRIDE [Suspect]
     Indication: GASTROOESOPHAGEAL REFLUX DISEASE
     Route: 048
  11. DIOVAN [Concomitant]
     Indication: ARTHRITIS
     Route: 065
     Dates: start: 20050817
  12. AVODART [Concomitant]
     Indication: PROSTATIC DISORDER
     Route: 065
     Dates: start: 20100218

REACTIONS (1)
  - ELECTROCARDIOGRAM QT PROLONGED [None]
